FAERS Safety Report 5387941-6 (Version None)
Quarter: 2007Q3

REPORT INFORMATION
  Report Type: 
  Country: None (occurrence: None)
  Receive Date: 20070716
  Receipt Date: 20060919
  Transmission Date: 20080115
  Serious: No
  Sender: FDA-Public Use
  Company Number: A0620450A

PATIENT
  Age: 66 Year
  Sex: Male

DRUGS (1)
  1. NICORETTE [Suspect]
     Dosage: 4MG UNKNOWN
     Route: 048
     Dates: start: 20060601

REACTIONS (1)
  - OEDEMA PERIPHERAL [None]
